FAERS Safety Report 5146167-1 (Version None)
Quarter: 2006Q4

REPORT INFORMATION
  Report Type: 
  Country: None (occurrence: None)
  Receive Date: 20061106
  Receipt Date: 20061106
  Transmission Date: 20070319
  Serious: Yes (Other)
  Sender: FDA-Public Use
  Company Number: None

PATIENT
  Age: 50 Year
  Sex: Female
  Weight: 83.4619 kg

DRUGS (2)
  1. XOLAIR [Suspect]
     Indication: ASTHMA
     Dosage: 300MG   Q4WKS   SQ;  Q4WKS  SQ
     Route: 058
     Dates: start: 20060721, end: 20060721
  2. XOLAIR [Suspect]
     Indication: ASTHMA
     Dosage: 300MG   Q4WKS   SQ;  Q4WKS  SQ
     Route: 058
     Dates: start: 20060818, end: 20060818

REACTIONS (3)
  - ACTIVATED PARTIAL THROMBOPLASTIN TIME PROLONGED [None]
  - ARTHRALGIA [None]
  - CONTUSION [None]
